FAERS Safety Report 16638420 (Version 2)
Quarter: 2019Q3

REPORT INFORMATION
  Report Type: Spontaneous
  Country: JP (occurrence: JP)
  Receive Date: 20190726
  Receipt Date: 20190814
  Transmission Date: 20191004
  Serious: Yes (Death, Hospitalization, Other)
  Sender: FDA-Public Use
  Company Number: JP-ASTRAZENECA-2018SF38697

PATIENT
  Age: 24364 Day
  Sex: Male
  Weight: 66 kg

DRUGS (8)
  1. MEVALOTIN [Suspect]
     Active Substance: PRAVASTATIN SODIUM
     Indication: DYSLIPIDAEMIA
     Route: 048
     Dates: end: 20181031
  2. CELECOX [Suspect]
     Active Substance: CELECOXIB
     Route: 048
     Dates: end: 20181031
  3. JZOLOFT [Suspect]
     Active Substance: SERTRALINE HYDROCHLORIDE
     Indication: DEPRESSION
     Dosage: 50 MG NUMBER OF SEPARATE DOSAGES UNKNOWN
     Route: 048
     Dates: end: 20181031
  4. MINOMYCIN [Suspect]
     Active Substance: MINOCYCLINE HYDROCHLORIDE
     Route: 048
     Dates: end: 20181031
  5. TRAMADOL. [Suspect]
     Active Substance: TRAMADOL
     Route: 048
     Dates: end: 20181031
  6. MYSLEE [Suspect]
     Active Substance: ZOLPIDEM TARTRATE
     Indication: INSOMNIA
     Dosage: 5 MG NUMBER OF SEPARATE DOSAGES UNKNOWN
     Route: 048
     Dates: end: 20181031
  7. MEILAX [Suspect]
     Active Substance: ETHYL LOFLAZEPATE
     Indication: INSOMNIA
     Route: 048
     Dates: end: 20181031
  8. TAGRISSO [Suspect]
     Active Substance: OSIMERTINIB
     Indication: NON-SMALL CELL LUNG CANCER
     Route: 048
     Dates: start: 20180604, end: 20181012

REACTIONS (4)
  - Atelectasis [Unknown]
  - Interstitial lung disease [Fatal]
  - Malignant neoplasm progression [Fatal]
  - Metastases to liver [Unknown]

NARRATIVE: CASE EVENT DATE: 20181002
